FAERS Safety Report 10725130 (Version 7)
Quarter: 2015Q4

REPORT INFORMATION
  Report Type: Report from Study
  Country: IT (occurrence: IT)
  Receive Date: 20150120
  Receipt Date: 20151125
  Transmission Date: 20160304
  Serious: Yes (Life-Threatening, Hospitalization)
  Sender: FDA-Public Use
  Company Number: IT-EXELIXIS-XL18415005101

PATIENT
  Age: 60 Year
  Sex: Male
  Weight: 93 kg

DRUGS (10)
  1. HUMALOG [Concomitant]
     Active Substance: INSULIN LISPRO
  2. TRANSTEC [Concomitant]
     Active Substance: BUPRENORPHINE
  3. FARINGEC [Concomitant]
  4. CANESTEN [Concomitant]
     Active Substance: CLOTRIMAZOLE
  5. GENTALYN [Concomitant]
     Active Substance: GENTAMICIN SULFATE
  6. CARDIRENE [Concomitant]
     Active Substance: ASPIRIN DL-LYSINE
  7. AUREOMICINA [Concomitant]
  8. XL184 [Suspect]
     Active Substance: CABOZANTINIB
     Indication: HEPATOCELLULAR CARCINOMA
     Dosage: 60 MG, QD
     Route: 048
     Dates: start: 20141209, end: 20150104
  9. MYCOSTATIN [Concomitant]
     Active Substance: NYSTATIN
  10. MAG 2 [Concomitant]
     Active Substance: MAGNESIUM CHLORIDE

REACTIONS (6)
  - Scrotal pain [Recovered/Resolved]
  - Proctalgia [Recovered/Resolved]
  - Large intestine perforation [Recovered/Resolved]
  - Peritonitis [Recovered/Resolved]
  - Dehydration [Not Recovered/Not Resolved]
  - Intestinal anastomosis complication [Recovered/Resolved]

NARRATIVE: CASE EVENT DATE: 20141229
